FAERS Safety Report 10102147 (Version 2)
Quarter: 2014Q3

REPORT INFORMATION
  Report Type: Spontaneous
  Country: US (occurrence: US)
  Receive Date: 20140424
  Receipt Date: 20140716
  Transmission Date: 20150326
  Serious: Yes (Hospitalization, Other)
  Sender: FDA-Public Use
  Company Number: US-ASTRAZENECA-2014SE26942

PATIENT
  Age: 84 Year
  Sex: Female
  Weight: 85.7 kg

DRUGS (15)
  1. PRILOSEC [Suspect]
     Active Substance: OMEPRAZOLE MAGNESIUM
     Indication: NAUSEA
     Dosage: DAILY
     Route: 048
     Dates: start: 201403
  2. PRILOSEC [Suspect]
     Active Substance: OMEPRAZOLE MAGNESIUM
     Indication: ABDOMINAL DISCOMFORT
     Dosage: DAILY
     Route: 048
     Dates: start: 201403
  3. PRILOSEC [Suspect]
     Active Substance: OMEPRAZOLE MAGNESIUM
     Indication: NAUSEA
     Dosage: DAILY
     Route: 048
     Dates: start: 2009, end: 2010
  4. HYDROCHOROT [Concomitant]
     Indication: DIURETIC THERAPY
     Route: 048
     Dates: start: 201402
  5. HYDROCHOROT [Concomitant]
     Indication: DIURETIC THERAPY
     Route: 048
     Dates: start: 201302, end: 201402
  6. LOSARTAN POT [Concomitant]
     Indication: BLOOD PRESSURE ABNORMAL
     Route: 048
  7. VIOXX [Concomitant]
     Active Substance: ROFECOXIB
     Indication: ARTHRITIS
  8. PRAVASTATION [Concomitant]
     Indication: BLOOD CHOLESTEROL ABNORMAL
     Route: 048
  9. ASPIRIN. [Concomitant]
     Active Substance: ASPIRIN
     Indication: ARTERIAL OCCLUSIVE DISEASE
     Route: 048
  10. PRILOSEC [Suspect]
     Active Substance: OMEPRAZOLE MAGNESIUM
     Indication: GASTRIC ULCER
     Dosage: DAILY
     Route: 048
     Dates: start: 2009, end: 2010
  11. PRILOSEC [Suspect]
     Active Substance: OMEPRAZOLE MAGNESIUM
     Indication: GASTRIC ULCER
     Dosage: DAILY
     Route: 048
     Dates: start: 201403
  12. METOPROLOL SUCCINATE ER [Suspect]
     Active Substance: METOPROLOL SUCCINATE
     Indication: BLOOD PRESSURE ABNORMAL
     Route: 048
     Dates: start: 2003
  13. ZANTAC [Suspect]
     Active Substance: RANITIDINE HYDROCHLORIDE
     Indication: ABDOMINAL DISCOMFORT
     Route: 065
  14. PRILOSEC [Suspect]
     Active Substance: OMEPRAZOLE MAGNESIUM
     Indication: ABDOMINAL DISCOMFORT
     Dosage: DAILY
     Route: 048
     Dates: start: 2009, end: 2010
  15. REQUIP [Concomitant]
     Active Substance: ROPINIROLE HYDROCHLORIDE
     Indication: RESTLESS LEGS SYNDROME
     Route: 048

REACTIONS (10)
  - Ulcer haemorrhage [Unknown]
  - Abdominal discomfort [Unknown]
  - Hypertension [Unknown]
  - Transient ischaemic attack [Unknown]
  - Restless legs syndrome [Unknown]
  - Intentional product misuse [Unknown]
  - Endometrial cancer [Unknown]
  - Nausea [Unknown]
  - Arterial occlusive disease [Unknown]
  - Glucose tolerance impaired [Unknown]

NARRATIVE: CASE EVENT DATE: 2008
